FAERS Safety Report 7744241-4 (Version None)
Quarter: 2011Q3

REPORT INFORMATION
  Report Type: 
  Country: None (occurrence: None)
  Receive Date: 20110819
  Receipt Date: 20110701
  Transmission Date: 20111222
  Serious: No
  Sender: FDA-Public Use
  Company Number: 036510

PATIENT
  Sex: Female

DRUGS (1)
  1. LACOSAMIDE [Suspect]
     Dosage: (100 MG QD, ONCE DAILY AT BED TIME)

REACTIONS (2)
  - CHEST PAIN [None]
  - CHEST DISCOMFORT [None]
